FAERS Safety Report 21695700 (Version 1)
Quarter: 2022Q4

REPORT INFORMATION
  Report Type: Spontaneous
  Country: US (occurrence: None)
  Receive Date: 20221207
  Receipt Date: 20221207
  Transmission Date: 20230112
  Serious: Yes (Other)
  Sender: FDA-Public Use
  Company Number: 2022A393659

PATIENT
  Age: 55 Year
  Sex: Male

DRUGS (5)
  1. SYMBICORT [Suspect]
     Active Substance: BUDESONIDE\FORMOTEROL FUMARATE DIHYDRATE
     Indication: Chronic obstructive pulmonary disease
     Dosage: 160/4.5 MCG, TWO INHALATIONS, TWICE DAILY
     Route: 055
  2. SYMBICORT [Suspect]
     Active Substance: BUDESONIDE\FORMOTEROL FUMARATE DIHYDRATE
     Indication: Chronic obstructive pulmonary disease
     Dosage: 160/4.5 MCG ONE INHALATION DAILY
     Route: 055
     Dates: end: 2021
  3. BUDESONIDE\FORMOTEROL [Suspect]
     Active Substance: BUDESONIDE\FORMOTEROL
     Indication: Chronic obstructive pulmonary disease
     Dosage: 160/4.5 MCG ONE INHALATION DAILY
     Route: 055
     Dates: start: 2021, end: 202211
  4. BUDESONIDE\FORMOTEROL [Suspect]
     Active Substance: BUDESONIDE\FORMOTEROL
     Indication: Chronic obstructive pulmonary disease
     Dosage: 160/4.5 MCG TWO INHALATIONS, TWICE DAILY
     Route: 055
     Dates: start: 2021, end: 202211
  5. ALBUTEROL [Concomitant]
     Active Substance: ALBUTEROL

REACTIONS (12)
  - COVID-19 [Recovered/Resolved]
  - Feeling cold [Recovering/Resolving]
  - Chest discomfort [Recovering/Resolving]
  - Pain [Recovering/Resolving]
  - Decreased appetite [Recovering/Resolving]
  - Peripheral coldness [Recovering/Resolving]
  - Pruritus [Recovering/Resolving]
  - Post procedural complication [Unknown]
  - Dyspnoea [Recovering/Resolving]
  - Cough [Recovering/Resolving]
  - Exposure to toxic agent [Recovered/Resolved]
  - Off label use [Unknown]

NARRATIVE: CASE EVENT DATE: 20210101
